FAERS Safety Report 6505778-9 (Version None)
Quarter: 2009Q4

REPORT INFORMATION
  Report Type: 
  Country: None (occurrence: None)
  Receive Date: 20091218
  Receipt Date: 20091208
  Transmission Date: 20100525
  Serious: Yes (Hospitalization)
  Sender: FDA-Public Use
  Company Number: US-SANOFI-AVENTIS-2009SA008983

PATIENT
  Age: 81 Year
  Sex: Female

DRUGS (1)
  1. AMARYL [Suspect]
     Route: 048

REACTIONS (2)
  - BLINDNESS [None]
  - INFARCTION [None]
